FAERS Safety Report 16730185 (Version 2)
Quarter: 2019Q3

REPORT INFORMATION
  Report Type: Spontaneous
  Country: GB (occurrence: GB)
  Receive Date: 20190822
  Receipt Date: 20190827
  Transmission Date: 20191005
  Serious: Yes (Other)
  Sender: FDA-Public Use
  Company Number: GB-MYLANLABS-2019M1078102

PATIENT

DRUGS (2)
  1. FLUOXETINE [Suspect]
     Active Substance: FLUOXETINE HYDROCHLORIDE
     Indication: DEPRESSION
     Dosage: UNK
  2. FLUOXETINE [Suspect]
     Active Substance: FLUOXETINE HYDROCHLORIDE
     Indication: ANXIETY
     Dosage: 20 MILLIGRAM, OD
     Route: 048
     Dates: start: 20190201

REACTIONS (11)
  - Emotional distress [Unknown]
  - Palpitations [Unknown]
  - Tremor [Not Recovered/Not Resolved]
  - Paranoia [Unknown]
  - Crying [Unknown]
  - Feeling abnormal [Unknown]
  - Panic attack [Not Recovered/Not Resolved]
  - Affect lability [Unknown]
  - Tearfulness [Not Recovered/Not Resolved]
  - Withdrawal syndrome [Recovering/Resolving]
  - Suicidal ideation [Unknown]

NARRATIVE: CASE EVENT DATE: 20190224
